FAERS Safety Report 7640899-9 (Version None)
Quarter: 2011Q3

REPORT INFORMATION
  Report Type: 
  Country: None (occurrence: None)
  Receive Date: 20110728
  Receipt Date: 20110728
  Transmission Date: 20111222
  Serious: Yes (Life-Threatening, Other)
  Sender: FDA-Public Use
  Company Number: None

PATIENT
  Age: 40 Year
  Sex: Female
  Weight: 61.234 kg

DRUGS (6)
  1. BENZTROPINE MESYLATE [Concomitant]
  2. DIPHAMEDADRINE [Concomitant]
     Indication: HYPERSENSITIVITY
     Dosage: 75 MG
     Route: 040
     Dates: start: 20110205, end: 20110205
  3. PROPOFOL [Concomitant]
  4. LOW OSLOMOR ,HOICM 399 IODINE, HOCM 399 IODINE [Concomitant]
  5. COMPAZINE [Suspect]
     Indication: HYPERSENSITIVITY
     Dosage: 10 MG
     Route: 040
     Dates: start: 20110205, end: 20110205
  6. LACTATED RINGER'S [Concomitant]

REACTIONS (4)
  - OVERDOSE [None]
  - DYSTONIA [None]
  - COMA [None]
  - RESPIRATORY RATE DECREASED [None]
